FAERS Safety Report 15736467 (Version 1)
Quarter: 2018Q4

REPORT INFORMATION
  Report Type: Spontaneous
  Country: US (occurrence: US)
  Receive Date: 20181218
  Receipt Date: 20181218
  Transmission Date: 20190205
  Serious: Yes (Other)
  Sender: FDA-Public Use
  Company Number: US-MIKART, INC.-2060336

PATIENT
  Age: 68 Year
  Sex: Female
  Weight: 59.09 kg

DRUGS (2)
  1. HYDROCODONE BITARTRATE AND ACETAMINOPHEN [Suspect]
     Active Substance: ACETAMINOPHEN\HYDROCODONE BITARTRATE
     Indication: ANALGESIC THERAPY
     Route: 048
     Dates: start: 201407
  2. IBRANCE [Concomitant]
     Active Substance: PALBOCICLIB
     Route: 048
     Dates: start: 201707, end: 20181109

REACTIONS (4)
  - Tumour marker increased [Unknown]
  - Bone neoplasm [Unknown]
  - Hepatic neoplasm [Unknown]
  - Pain [Unknown]
